FAERS Safety Report 23489489 (Version 1)
Quarter: 2024Q1

REPORT INFORMATION
  Report Type: Spontaneous
  Country: US (occurrence: None)
  Receive Date: 20240206
  Receipt Date: 20240206
  Transmission Date: 20240410
  Serious: No
  Sender: FDA-Public Use
  Company Number: US-ROCHE-3392327

PATIENT
  Age: 70 Year
  Sex: Female
  Weight: 97.61 kg

DRUGS (5)
  1. XOLAIR [Suspect]
     Active Substance: OMALIZUMAB
     Indication: Urticaria
     Dosage: EVERY OTHER WEDNESDAY
     Route: 058
     Dates: start: 202211
  2. XOLAIR [Suspect]
     Active Substance: OMALIZUMAB
  3. XOLAIR [Suspect]
     Active Substance: OMALIZUMAB
  4. ALLEGRA [Concomitant]
     Active Substance: FEXOFENADINE HYDROCHLORIDE
     Indication: Urticaria
     Dosage: ONE IN THE MORNING AND ONE IN THE EVENING
     Route: 048
     Dates: start: 2021
  5. PEPCID [Concomitant]
     Active Substance: FAMOTIDINE
     Dosage: ONE IN THE MORNING AND ONE IN THE EVENING
     Route: 048
     Dates: start: 2021

REACTIONS (5)
  - Wrong technique in product usage process [Unknown]
  - Product quality issue [Unknown]
  - Needle issue [Unknown]
  - Off label use [Unknown]
  - No adverse event [Unknown]

NARRATIVE: CASE EVENT DATE: 20230719
